FAERS Safety Report 6360585-5 (Version None)
Quarter: 2009Q3

REPORT INFORMATION
  Report Type: 
  Country: None (occurrence: None)
  Receive Date: 20090915
  Receipt Date: 20090902
  Transmission Date: 20100115
  Serious: Yes (Death, Hospitalization)
  Sender: FDA-Public Use
  Company Number: 2009AP003438

PATIENT
  Age: 79 Year
  Sex: Male

DRUGS (17)
  1. GEMFIBROZIL [Suspect]
     Indication: HYPERLIPIDAEMIA
     Dosage: 600 MG;BID;PO
     Route: 048
  2. LOVASTATIN [Suspect]
     Indication: HYPERLIPIDAEMIA
     Dosage: 40 MG;QD;PO
     Route: 048
  3. LINEZOLID [Suspect]
     Dosage: 600 MG;Q12H;IV
     Route: 042
  4. VANCOMYCIN [Concomitant]
  5. DOCUSATE SODIUM [Concomitant]
  6. FERROUS SULFATE TAB [Concomitant]
  7. FLUTICASONE [Concomitant]
  8. IPRATROPIUM [Concomitant]
  9. GLYBURIDE [Concomitant]
  10. NIFEDIPINE [Concomitant]
  11. NITROGLYCERIN COMP. [Concomitant]
  12. PANTOPRAZOLE SODIUM [Concomitant]
  13. TAMSULOSIN HCL [Concomitant]
  14. WARFARIN [Concomitant]
  15. ACETAMINOPHEN [Concomitant]
  16. HYDROXYZINE [Concomitant]
  17. NITROGLYCERIN COMP. [Concomitant]

REACTIONS (18)
  - ADVERSE REACTION [None]
  - BLOOD CREATINE PHOSPHOKINASE DECREASED [None]
  - BLOOD CREATINE PHOSPHOKINASE INCREASED [None]
  - DELIRIUM [None]
  - DRUG INEFFECTIVE [None]
  - DRUG INTERACTION [None]
  - HAEMOPTYSIS [None]
  - HEPATIC FAILURE [None]
  - LUNG INFILTRATION [None]
  - MULTI-ORGAN FAILURE [None]
  - NO THERAPEUTIC RESPONSE [None]
  - PANCYTOPENIA [None]
  - PNEUMONIA STAPHYLOCOCCAL [None]
  - POLYNEUROPATHY [None]
  - RENAL FAILURE ACUTE [None]
  - RESPIRATORY FAILURE [None]
  - SEPSIS [None]
  - WEANING FAILURE [None]
